FAERS Safety Report 7300907-1 (Version None)
Quarter: 2011Q1

REPORT INFORMATION
  Report Type: 
  Country: None (occurrence: None)
  Receive Date: 20110104
  Receipt Date: 20100212
  Transmission Date: 20110831
  Serious: Yes (Other)
  Sender: FDA-Public Use
  Company Number: 224132USA

PATIENT
  Sex: Female

DRUGS (7)
  1. OESTRANORM [Suspect]
     Dates: start: 20000801, end: 20001101
  2. FEMHRT [Suspect]
     Dates: start: 20020101, end: 20020101
  3. PROVELLA-14 [Suspect]
     Dates: start: 19960101, end: 19970101
  4. MEDROXYPROGESTERONE ACETATE [Suspect]
     Dates: start: 19970101, end: 20020101
  5. ESTROGENS CONJUGATED [Suspect]
     Dates: start: 19970101, end: 20020101
  6. ESTROPIPATE [Suspect]
     Dates: start: 20020101, end: 20030101
  7. ESTROPIPATE [Suspect]
     Indication: HORMONE THERAPY
     Dates: start: 20020101, end: 20080101

REACTIONS (1)
  - BREAST CANCER [None]
